FAERS Safety Report 8249421-X (Version None)
Quarter: 2012Q2

REPORT INFORMATION
  Report Type: 
  Country: None (occurrence: None)
  Receive Date: 20120402
  Receipt Date: 20120320
  Transmission Date: 20120825
  Serious: Yes (Life-Threatening, Hospitalization)
  Sender: FDA-Public Use
  Company Number: US-SANOFI-AVENTIS-2012SA019528

PATIENT
  Age: 69 Year
  Sex: Male
  Weight: 75.5 kg

DRUGS (7)
  1. METFORMIN HCL [Concomitant]
     Dates: start: 19960101, end: 20100224
  2. STARLIX [Concomitant]
     Dates: start: 20100225
  3. SOLOSTAR [Suspect]
     Dates: start: 20100216, end: 20100221
  4. NOVOLOG [Concomitant]
     Dates: start: 20100222, end: 20100222
  5. LANTUS [Suspect]
     Dosage: DOSE:10 UNIT(S)
     Route: 058
     Dates: start: 20100216, end: 20100221
  6. BENICAR [Concomitant]
     Dates: start: 20080601
  7. HYDROCHLOROTHIAZIDE [Concomitant]
     Dates: start: 20080601

REACTIONS (2)
  - HYPOGLYCAEMIC UNCONSCIOUSNESS [None]
  - RESPIRATORY DISTRESS [None]
